FAERS Safety Report 5273225-3 (Version None)
Quarter: 2007Q1

REPORT INFORMATION
  Report Type: 
  Country: None (occurrence: None)
  Receive Date: 20070322
  Receipt Date: 20070316
  Transmission Date: 20070707
  Serious: Yes (Life-Threatening)
  Sender: FDA-Public Use
  Company Number: JP-MERCK-0509USA01987

PATIENT
  Age: 72 Year
  Sex: Female

DRUGS (9)
  1. MANIDIPINE HYDROCHLORIDE [Concomitant]
     Indication: HYPERTENSION
     Route: 048
     Dates: start: 20031101
  2. FOSAMAX [Suspect]
     Indication: OSTEOPOROSIS
     Route: 048
     Dates: start: 20021101, end: 20030728
  3. FOSAMAX [Suspect]
     Route: 048
     Dates: start: 20041112, end: 20050718
  4. ALFACALCIDOL [Concomitant]
     Indication: OSTEOPOROSIS
     Route: 048
     Dates: start: 20021101
  5. ENALAPRIL MALEATE [Suspect]
     Indication: HYPERTENSION
     Route: 048
     Dates: start: 20031104
  6. BENET [Suspect]
     Indication: OSTEOPOROSIS
     Route: 048
     Dates: start: 20030729, end: 20041111
  7. BROTIZOLAM [Concomitant]
     Indication: INSOMNIA
     Route: 048
     Dates: start: 20021201, end: 20040201
  8. RIOHARD [Concomitant]
     Route: 048
     Dates: start: 20021201, end: 20031103
  9. RIOHARD [Concomitant]
     Route: 048
     Dates: start: 20031104, end: 20040910

REACTIONS (1)
  - MYELODYSPLASTIC SYNDROME [None]
